FAERS Safety Report 9967047 (Version 1)
Quarter: 2014Q1

REPORT INFORMATION
  Report Type: Other
  Country: US (occurrence: US)
  Receive Date: 20140305
  Receipt Date: 20140305
  Transmission Date: 20141002
  Serious: Yes (Death)
  Sender: FDA-Public Use
  Company Number: US-FRI-1000054873

PATIENT
  Sex: Male

DRUGS (3)
  1. CITALOPRAM [Suspect]
  2. VENLAFAXINE [Suspect]
  3. COCAINE [Suspect]

REACTIONS (1)
  - Completed suicide [Fatal]
